FAERS Safety Report 7008508-X (Version None)
Quarter: 2010Q3

REPORT INFORMATION
  Report Type: 
  Country: None (occurrence: None)
  Receive Date: 20100922
  Receipt Date: 20100910
  Transmission Date: 20110219
  Serious: Yes (Other)
  Sender: FDA-Public Use
  Company Number: US-PFIZER INC-2010102611

PATIENT
  Sex: Male
  Weight: 99.773 kg

DRUGS (2)
  1. CHANTIX [Suspect]
     Indication: SMOKING CESSATION THERAPY
     Dosage: 0.5 MG, 1X/DAY
     Route: 048
     Dates: start: 20100601
  2. NICOTINE [Suspect]
     Dosage: UNK
     Route: 062

REACTIONS (1)
  - SLEEP DISORDER [None]
